FAERS Safety Report 25234064 (Version 1)
Quarter: 2025Q2

REPORT INFORMATION
  Report Type: Spontaneous
  Country: GB (occurrence: GB)
  Receive Date: 20250424
  Receipt Date: 20250424
  Transmission Date: 20250716
  Serious: Yes (Other)
  Sender: AUROBINDO
  Company Number: GB-SANDOZ-SDZ2025GB021552

PATIENT
  Sex: Female

DRUGS (3)
  1. MYCOPHENOLATE MOFETIL [Suspect]
     Active Substance: MYCOPHENOLATE MOFETIL
     Indication: Product used for unknown indication
     Dosage: 1500 MILLIGRAM, ONCE A DAY
     Route: 065
  2. TACROLIMUS [Suspect]
     Active Substance: TACROLIMUS
     Indication: Renal transplant
     Dosage: 3 MILLIGRAM, ONCE A DAY
     Route: 048
  3. CINACALCET [Concomitant]
     Active Substance: CINACALCET
     Indication: Product used for unknown indication
     Route: 065

REACTIONS (1)
  - Transplant dysfunction [Unknown]
